FAERS Safety Report 19216648 (Version 1)
Quarter: 2021Q2

REPORT INFORMATION
  Report Type: Spontaneous
  Country: US (occurrence: US)
  Receive Date: 20210505
  Receipt Date: 20210505
  Transmission Date: 20210717
  Serious: No
  Sender: FDA-Public Use
  Company Number: None

PATIENT
  Age: 58 Year
  Sex: Male
  Weight: 99.34 kg

DRUGS (1)
  1. MELOXICAM (MELOXICAM 7.5MG TAB, UD) [Suspect]
     Active Substance: MELOXICAM
     Indication: PAIN
     Route: 048
     Dates: start: 20200409, end: 20200618

REACTIONS (3)
  - Headache [None]
  - Sinusitis [None]
  - Arthralgia [None]

NARRATIVE: CASE EVENT DATE: 20200618
